FAERS Safety Report 5522382-X (Version None)
Quarter: 2007Q4

REPORT INFORMATION
  Report Type: 
  Country: None (occurrence: None)
  Receive Date: 20071120
  Receipt Date: 20071112
  Transmission Date: 20080405
  Serious: Yes (Hospitalization, Other)
  Sender: FDA-Public Use
  Company Number: GB-PFIZER INC-2007088805

PATIENT
  Sex: Male

DRUGS (2)
  1. LYRICA [Suspect]
     Indication: MIGRAINE WITH AURA
     Route: 048
     Dates: start: 20070928, end: 20071107
  2. SIMVASTATIN [Concomitant]
     Indication: HYPERCHOLESTEROLAEMIA
     Dates: start: 20050501

REACTIONS (2)
  - BLOOD GLUCOSE INCREASED [None]
  - MIGRAINE WITH AURA [None]
